FAERS Safety Report 5084236-5 (Version None)
Quarter: 2006Q3

REPORT INFORMATION
  Report Type: 
  Country: None (occurrence: None)
  Receive Date: 20060821
  Receipt Date: 20060303
  Transmission Date: 20061208
  Serious: No
  Sender: FDA-Public Use
  Company Number: US-BRISTOL-MYERS SQUIBB COMPANY-13303466

PATIENT
  Age: 62 Year
  Sex: Female
  Weight: 49 kg

DRUGS (1)
  1. TEQUIN [Suspect]
     Indication: PHARYNGOLARYNGEAL PAIN
     Dates: start: 20060301

REACTIONS (2)
  - DIZZINESS [None]
  - PHARYNGITIS [None]
